FAERS Safety Report 23867981 (Version 1)
Quarter: 2024Q2

REPORT INFORMATION
  Report Type: Spontaneous
  Country: IN (occurrence: IN)
  Receive Date: 20240517
  Receipt Date: 20240517
  Transmission Date: 20240716
  Serious: Yes (Other)
  Sender: FDA-Public Use
  Company Number: IN-SANDOZ-SDZ2024IN047576

PATIENT
  Sex: Male

DRUGS (3)
  1. MYFORTIC [Suspect]
     Active Substance: MYCOPHENOLATE SODIUM
     Indication: Renal transplant
     Dosage: 360 MG, BID
     Route: 065
     Dates: start: 20200919
  2. TACROLIMUS [Suspect]
     Active Substance: TACROLIMUS
     Indication: Renal transplant
     Dosage: 1.5 MG, BID
     Route: 048
     Dates: start: 20200919
  3. TACROLIMUS [Suspect]
     Active Substance: TACROLIMUS
     Dosage: 2 MG
     Route: 048

REACTIONS (12)
  - Cataract [Unknown]
  - Proctalgia [Unknown]
  - Flatulence [Unknown]
  - Hiccups [Unknown]
  - Asthenia [Unknown]
  - Pain in extremity [Unknown]
  - Joint swelling [Unknown]
  - Hyperglycaemia [Unknown]
  - Diarrhoea [Unknown]
  - Constipation [Unknown]
  - Hypertension [Unknown]
  - Renal mass [Unknown]
